FAERS Safety Report 16260420 (Version 1)
Quarter: 2019Q2

REPORT INFORMATION
  Report Type: Spontaneous
  Country: US (occurrence: US)
  Receive Date: 20190430
  Receipt Date: 20190430
  Transmission Date: 20190711
  Serious: Yes (Hospitalization)
  Sender: FDA-Public Use
  Company Number: None

PATIENT
  Sex: Female

DRUGS (8)
  1. VYVANSE [Concomitant]
     Active Substance: LISDEXAMFETAMINE DIMESYLATE
     Dates: start: 20190409
  2. SULFASALAZINE 500MG TABLETS [Concomitant]
     Dates: start: 20180810
  3. HYDROCODONE/APAP 5-300MG TABLETS [Concomitant]
     Dates: start: 20190408
  4. METAXALONE 400MG TABLETS [Concomitant]
     Dates: start: 20190131
  5. ROSUVASTATIN 20 MG TABLETS [Concomitant]
     Dates: start: 20190409
  6. TIZANDINE 2MG TABLETS [Concomitant]
     Dates: start: 20190312
  7. COSENTYX [Suspect]
     Active Substance: SECUKINUMAB
     Indication: PSORIASIS
     Dosage: ?          OTHER FREQUENCY:ONCE A MONTH;?
     Route: 058
  8. DIAZEPAM 10MG TABLETS [Concomitant]
     Dates: start: 20190425

REACTIONS (1)
  - Diarrhoea [None]
